FAERS Safety Report 5343472-0 (Version None)
Quarter: 2007Q2

REPORT INFORMATION
  Report Type: 
  Country: None (occurrence: None)
  Receive Date: 20070531
  Receipt Date: 20070516
  Transmission Date: 20071010
  Serious: Yes (Hospitalization)
  Sender: FDA-Public Use
  Company Number: PAR_01582_2007

PATIENT
  Age: 15 Year
  Sex: Female

DRUGS (1)
  1. IBUPROFEN [Suspect]

REACTIONS (6)
  - DRUG ERUPTION [None]
  - MUCOSAL EROSION [None]
  - MUCOSAL INFLAMMATION [None]
  - OEDEMA [None]
  - VULVAL ULCERATION [None]
  - VULVITIS [None]
